FAERS Safety Report 12412510 (Version 1)
Quarter: 2016Q2

REPORT INFORMATION
  Report Type: Spontaneous
  Country: US (occurrence: US)
  Receive Date: 20160527
  Receipt Date: 20160527
  Transmission Date: 20160815
  Serious: Yes (Other)
  Sender: FDA-Public Use
  Company Number: US-MDT-ADR-2016-00050

PATIENT
  Age: 56 Year
  Sex: Female

DRUGS (1)
  1. BACLOFEN. [Suspect]
     Active Substance: BACLOFEN
     Route: 037

REACTIONS (3)
  - Implant site infection [Unknown]
  - Post procedural infection [Unknown]
  - No therapeutic response [Unknown]

NARRATIVE: CASE EVENT DATE: 20110204
